FAERS Safety Report 10446901 (Version 6)
Quarter: 2016Q3

REPORT INFORMATION
  Report Type: Spontaneous
  Country: AU (occurrence: AU)
  Receive Date: 20140911
  Receipt Date: 20160822
  Transmission Date: 20161109
  Serious: Yes (Death, Hospitalization, Other)
  Sender: FDA-Public Use
  Company Number: AU-JNJFOC-20140904131

PATIENT
  Age: 30 Year
  Sex: Male

DRUGS (2)
  1. INVEGA SUSTENNA [Suspect]
     Active Substance: PALIPERIDONE PALMITATE
     Indication: ANTISOCIAL PERSONALITY DISORDER
     Route: 030
  2. INVEGA SUSTENNA [Suspect]
     Active Substance: PALIPERIDONE PALMITATE
     Indication: ANTISOCIAL PERSONALITY DISORDER
     Route: 030
     Dates: start: 201306

REACTIONS (16)
  - Crying [Unknown]
  - Suicide attempt [Unknown]
  - Anxiety [Unknown]
  - Stereotypy [Unknown]
  - Intellectual disability [Unknown]
  - Inappropriate schedule of drug administration [Unknown]
  - Abasia [Unknown]
  - Pruritus [Unknown]
  - Feeling abnormal [Unknown]
  - Delusion [Unknown]
  - Suicidal ideation [Unknown]
  - Incorrect dose administered [Unknown]
  - Completed suicide [Fatal]
  - Depression [Unknown]
  - Thinking abnormal [Unknown]
  - Off label use [Unknown]
